FAERS Safety Report 11583381 (Version 1)
Quarter: 2015Q3

REPORT INFORMATION
  Report Type: Spontaneous
  Country: US (occurrence: None)
  Receive Date: 20150930
  Receipt Date: 20150930
  Transmission Date: 20151125
  Serious: Yes (Other)
  Sender: FDA-Public Use
  Company Number: None

PATIENT
  Age: 25 Year
  Sex: Female
  Weight: 65.77 kg

DRUGS (1)
  1. CLINDAMYCIN [Suspect]
     Active Substance: CLINDAMYCIN\CLINDAMYCIN PHOSPHATE
     Indication: TOOTHACHE
     Route: 048
     Dates: start: 20150927, end: 20150928

REACTIONS (8)
  - Abdominal pain upper [None]
  - Paraesthesia [None]
  - Dizziness [None]
  - Fatigue [None]
  - Secretion discharge [None]
  - Nervous system disorder [None]
  - Headache [None]
  - Anxiety [None]
